FAERS Safety Report 16713707 (Version 1)
Quarter: 2019Q3

REPORT INFORMATION
  Report Type: Spontaneous
  Country: US (occurrence: US)
  Receive Date: 20190819
  Receipt Date: 20190819
  Transmission Date: 20191004
  Serious: No
  Sender: FDA-Public Use
  Company Number: US-009507513-1907USA014106

PATIENT
  Age: 21 Year
  Sex: Female

DRUGS (8)
  1. VARIVAX [Suspect]
     Active Substance: VARICELLA-ZOSTER VIRUS STRAIN OKA/MERCK LIVE ANTIGEN
     Dates: start: 2007
  2. M-M-R II [Suspect]
     Active Substance: MEASLES VIRUS STRAIN ENDERS^ ATTENUATED EDMONSTON LIVE ANTIGEN\MUMPS VIRUS STRAIN B LEVEL JERYL LYNN LIVE ANTIGEN\RUBELLA VIRUS STRAIN WISTAR RA 27/3 LIVE ANTIGEN
     Dates: start: 2002
  3. VARIVAX [Suspect]
     Active Substance: VARICELLA-ZOSTER VIRUS STRAIN OKA/MERCK LIVE ANTIGEN
     Indication: PROPHYLAXIS
     Dates: start: 2001
  4. STERILE DILUENT (WATER) [Suspect]
     Active Substance: WATER
  5. RECOMBIVAX HB [Suspect]
     Active Substance: HEPATITIS B VIRUS SUBTYPE ADW HBSAG SURFACE PROTEIN ANTIGEN
     Dates: start: 1998
  6. M-M-R II [Suspect]
     Active Substance: MEASLES VIRUS STRAIN ENDERS^ ATTENUATED EDMONSTON LIVE ANTIGEN\MUMPS VIRUS STRAIN B LEVEL JERYL LYNN LIVE ANTIGEN\RUBELLA VIRUS STRAIN WISTAR RA 27/3 LIVE ANTIGEN
     Indication: PROPHYLAXIS
     Dates: start: 1998
  7. RECOMBIVAX HB [Suspect]
     Active Substance: HEPATITIS B VIRUS SUBTYPE ADW HBSAG SURFACE PROTEIN ANTIGEN
     Indication: PROPHYLAXIS
     Dates: start: 1997
  8. RECOMBIVAX HB [Suspect]
     Active Substance: HEPATITIS B VIRUS SUBTYPE ADW HBSAG SURFACE PROTEIN ANTIGEN
     Dates: start: 1997

REACTIONS (3)
  - Rubella antibody negative [Not Recovered/Not Resolved]
  - Antibody test negative [Not Recovered/Not Resolved]
  - Hepatitis B surface antibody negative [Not Recovered/Not Resolved]

NARRATIVE: CASE EVENT DATE: 20190717
